FAERS Safety Report 14897164 (Version 1)
Quarter: 2018Q2

REPORT INFORMATION
  Report Type: Spontaneous
  Country: US (occurrence: US)
  Receive Date: 20180427
  Receipt Date: 20180427
  Transmission Date: 20180711
  Serious: Yes (Hospitalization)
  Sender: FDA-Public Use
  Company Number: None

PATIENT
  Age: 58 Year
  Sex: Male

DRUGS (23)
  1. HUMIRA [Suspect]
     Active Substance: ADALIMUMAB
     Indication: CROHN^S DISEASE
     Route: 058
     Dates: start: 201704
  2. MIRALAX [Concomitant]
     Active Substance: POLYETHYLENE GLYCOL 3350
  3. MERCAPTOPURI [Concomitant]
  4. METHADONE [Concomitant]
     Active Substance: METHADONE HYDROCHLORIDE
  5. TOPIRAMATE. [Concomitant]
     Active Substance: TOPIRAMATE
  6. OMEPRAZOLE. [Concomitant]
     Active Substance: OMEPRAZOLE
  7. VITAMIN D3 [Concomitant]
     Active Substance: CHOLECALCIFEROL
  8. METRONIDAZOL [Concomitant]
     Active Substance: METRONIDAZOLE
  9. SUCRALFATE. [Concomitant]
     Active Substance: SUCRALFATE
  10. LEVOTHYROXIN [Concomitant]
     Active Substance: LEVOTHYROXINE
  11. VOLTAREN [Concomitant]
     Active Substance: DICLOFENAC SODIUM
  12. VITAMIN B12 [Concomitant]
     Active Substance: CYANOCOBALAMIN
  13. VIAGRA [Concomitant]
     Active Substance: SILDENAFIL CITRATE
  14. OXYCODONE [Concomitant]
     Active Substance: OXYCODONE
  15. FUROSEMIDE. [Concomitant]
     Active Substance: FUROSEMIDE
  16. BUPROPION. [Concomitant]
     Active Substance: BUPROPION
  17. HYDROMORPHON [Concomitant]
     Active Substance: HYDROMORPHONE
  18. POTASSIUM [Concomitant]
     Active Substance: POTASSIUM
  19. MODAFINIL. [Concomitant]
     Active Substance: MODAFINIL
  20. GABAPENTIN. [Concomitant]
     Active Substance: GABAPENTIN
  21. BACLOFEN. [Concomitant]
     Active Substance: BACLOFEN
  22. DULOXETINE. [Concomitant]
     Active Substance: DULOXETINE
  23. TRAZODONE [Concomitant]
     Active Substance: TRAZODONE HYDROCHLORIDE

REACTIONS (4)
  - Stenosis [None]
  - Condition aggravated [None]
  - Pain [None]
  - Oedema [None]

NARRATIVE: CASE EVENT DATE: 201804
